FAERS Safety Report 7552346-6 (Version None)
Quarter: 2011Q2

REPORT INFORMATION
  Report Type: 
  Country: None (occurrence: None)
  Receive Date: 20110616
  Receipt Date: 20060613
  Transmission Date: 20111010
  Serious: Yes (Hospitalization, Other)
  Sender: FDA-Public Use
  Company Number: PHEH2006US06760

PATIENT
  Sex: Female

DRUGS (7)
  1. EXJADE [Suspect]
     Indication: BLOOD IRON INCREASED
     Dosage: 1500 MG, ONCE/SINGLE
     Route: 048
     Dates: start: 20060504, end: 20060504
  2. CLARITIN [Concomitant]
     Dosage: 10 MG, QD
     Route: 048
     Dates: start: 20050701
  3. ATENOLOL [Concomitant]
     Indication: HYPERTENSION
     Dosage: 75 MG, QD
     Dates: start: 19900101
  4. ZOLOFT [Concomitant]
     Indication: DEPRESSION
     Dosage: 100 MG, QD
     Dates: start: 19900101
  5. XANAX [Concomitant]
     Indication: ANXIETY
     Dosage: 0.5 MG, QD
     Dates: start: 20040101
  6. BUMEX [Concomitant]
     Indication: FLUID RETENTION
     Dosage: 2 MG, QD
     Dates: start: 19900101, end: 20060512
  7. PROCRIT [Concomitant]
     Indication: ANAEMIA
     Dosage: 4000
     Dates: start: 20050701

REACTIONS (22)
  - HYPOKINESIA [None]
  - SYNCOPE [None]
  - HAEMOCHROMATOSIS [None]
  - OESOPHAGEAL PAIN [None]
  - ASTHENIA [None]
  - PARALYSIS [None]
  - OROPHARYNGEAL BLISTERING [None]
  - BLINDNESS [None]
  - VISION BLURRED [None]
  - HEADACHE [None]
  - HEPATITIS C [None]
  - PALPITATIONS [None]
  - TINNITUS [None]
  - HEART RATE INCREASED [None]
  - PARAESTHESIA [None]
  - HAEMOLYTIC ANAEMIA [None]
  - FEELING HOT [None]
  - HYPOAESTHESIA [None]
  - RASH [None]
  - DYSPEPSIA [None]
  - ORAL DISCOMFORT [None]
  - DIZZINESS [None]
